FAERS Safety Report 5222833-4 (Version None)
Quarter: 2007Q1

REPORT INFORMATION
  Report Type: 
  Country: None (occurrence: None)
  Receive Date: 20070129
  Receipt Date: 20070119
  Transmission Date: 20070707
  Serious: Yes (Hospitalization)
  Sender: FDA-Public Use
  Company Number: FR-GLAXOSMITHKLINE-B0455033A

PATIENT
  Age: 50 Year
  Sex: Female

DRUGS (4)
  1. ZOFRAN [Suspect]
     Dosage: 8MG SINGLE DOSE
     Route: 042
     Dates: start: 20061122, end: 20061122
  2. SOLU-MEDROL [Suspect]
     Dosage: 120MG SINGLE DOSE
     Route: 042
     Dates: start: 20061122, end: 20061122
  3. ETOPOSIDE [Suspect]
     Dosage: 145MG PER DAY
     Route: 042
     Dates: start: 20061122, end: 20061124
  4. CARBOPLATIN [Suspect]
     Dosage: 409MG SINGLE DOSE
     Route: 042
     Dates: start: 20061122, end: 20061122

REACTIONS (9)
  - ABDOMINAL PAIN UPPER [None]
  - ACUTE CORONARY SYNDROME [None]
  - CARDIAC FAILURE [None]
  - CARDIOGENIC SHOCK [None]
  - EJECTION FRACTION DECREASED [None]
  - NAUSEA [None]
  - STRESS CARDIOMYOPATHY [None]
  - TROPONIN INCREASED [None]
  - VOMITING [None]
